FAERS Safety Report 11721013 (Version 1)
Quarter: 2015Q4

REPORT INFORMATION
  Report Type: Spontaneous
  Country: US (occurrence: US)
  Receive Date: 20151110
  Receipt Date: 20151110
  Transmission Date: 20160304
  Serious: No
  Sender: FDA-Public Use
  Company Number: US-SA-2015SA163105

PATIENT
  Age: 64 Year
  Sex: Female
  Weight: 74.38 kg

DRUGS (12)
  1. PRALUENT [Suspect]
     Active Substance: ALIROCUMAB
     Indication: BLOOD CHOLESTEROL INCREASED
     Route: 065
     Dates: start: 20150928
  2. VITAMIN E [Concomitant]
     Active Substance: .ALPHA.-TOCOPHEROL
  3. VITAMIN D3 [Concomitant]
     Active Substance: CHOLECALCIFEROL
  4. FISH OIL [Concomitant]
     Active Substance: FISH OIL
  5. ALIROCUMAB PREFILLED PEN [Concomitant]
     Dates: start: 20150928
  6. CALCIUM [Concomitant]
     Active Substance: CALCIUM
  7. ASPIRIN. [Concomitant]
     Active Substance: ASPIRIN
  8. OMEGA 3 [Concomitant]
     Active Substance: OMEGA-3 FATTY ACIDS
  9. PANTHENOL/RETINOL/THIAMINE HYDROCHLORIDE/ASCORBIC ACID/ERGOCALCIFEROL/FOLIC ACID/RIBOFLAVIN/NICOTINA [Concomitant]
  10. MAGNESIUM [Concomitant]
     Active Substance: MAGNESIUM
  11. IBUPROFEN. [Concomitant]
     Active Substance: IBUPROFEN
  12. ZINC [Concomitant]
     Active Substance: ZINC\ZINC CHLORIDE

REACTIONS (1)
  - Diarrhoea [Not Recovered/Not Resolved]

NARRATIVE: CASE EVENT DATE: 20150928
